APPROVED DRUG PRODUCT: ALBUTEROL SULFATE
Active Ingredient: ALBUTEROL SULFATE
Strength: EQ 4MG BASE
Dosage Form/Route: TABLET;ORAL
Application: A211397 | Product #002 | TE Code: AB
Applicant: ACERTIS PHARMACEUTICALS LLC
Approved: Oct 26, 2018 | RLD: No | RS: No | Type: RX